FAERS Safety Report 13337121 (Version 1)
Quarter: 2017Q1

REPORT INFORMATION
  Report Type: Spontaneous
  Country: US (occurrence: US)
  Receive Date: 20170314
  Receipt Date: 20170314
  Transmission Date: 20170428
  Serious: No
  Sender: FDA-Public Use
  Company Number: US-JAZZ-2016-US-017941

PATIENT
  Sex: Female

DRUGS (1)
  1. FAZACLO [Suspect]
     Active Substance: CLOZAPINE
     Dosage: 300MG IN MORNING 500 MG AT BEDTIME
     Route: 048

REACTIONS (3)
  - Weight decreased [Unknown]
  - Dizziness [Unknown]
  - Nausea [Unknown]
